FAERS Safety Report 7896375-1 (Version None)
Quarter: 2011Q4

REPORT INFORMATION
  Report Type: 
  Country: None (occurrence: None)
  Receive Date: 20111106
  Receipt Date: 20110908
  Transmission Date: 20120403
  Serious: No
  Sender: FDA-Public Use
  Company Number: US-AMGEN-USASP2011046055

PATIENT
  Sex: Female

DRUGS (1)
  1. ENBREL [Suspect]
     Indication: RHEUMATOID ARTHRITIS
     Dosage: 50 MG, QWK
     Dates: start: 20081001

REACTIONS (6)
  - ASTHENIA [None]
  - SINUSITIS [None]
  - PYREXIA [None]
  - CYSTITIS [None]
  - THYROID DISORDER [None]
  - ABDOMINAL DISCOMFORT [None]
